FAERS Safety Report 9184877 (Version 1)
Quarter: 2013Q1

REPORT INFORMATION
  Report Type: Spontaneous
  Country: US (occurrence: US)
  Receive Date: 20130325
  Receipt Date: 20130325
  Transmission Date: 20140127
  Serious: No
  Sender: FDA-Public Use
  Company Number: US-BRISTOL-MYERS SQUIBB COMPANY-16514424

PATIENT
  Age: 59 Year
  Sex: Male
  Weight: 54.42 kg

DRUGS (3)
  1. ERBITUX [Suspect]
     Indication: THROAT CANCER
     Dosage: 668MG OF 21 DAYS?STOP DT:24JUL12
     Route: 042
     Dates: start: 20120320
  2. CARBOPLATIN [Suspect]
     Dates: start: 20120320
  3. 5-FLUOROURACIL [Suspect]
     Dosage: DAYS 1-4 CIV DAYS
     Dates: start: 20120320

REACTIONS (8)
  - White blood cell count decreased [Not Recovered/Not Resolved]
  - Rash [Unknown]
  - Dry skin [Unknown]
  - Skin exfoliation [Unknown]
  - Pain [Unknown]
  - Weight decreased [Unknown]
  - Nasopharyngitis [Unknown]
  - Arthralgia [Unknown]
